FAERS Safety Report 26102545 (Version 1)
Quarter: 2025Q4

REPORT INFORMATION
  Report Type: Spontaneous
  Country: US (occurrence: US)
  Receive Date: 20251128
  Receipt Date: 20251128
  Transmission Date: 20260118
  Serious: Yes (Other)
  Sender: PHARMACOSMOS A/S
  Company Number: US-NEBO-714271

PATIENT
  Sex: Female

DRUGS (2)
  1. MONOFERRIC [Suspect]
     Active Substance: FERRIC DERISOMALTOSE
     Indication: Iron deficiency anaemia
  2. MONOFERRIC [Suspect]
     Active Substance: FERRIC DERISOMALTOSE
     Indication: Iron deficiency anaemia

REACTIONS (5)
  - Nausea [Unknown]
  - Chest pain [Unknown]
  - Maternal exposure during pregnancy [Recovered/Resolved]
  - Back pain [Unknown]
  - Dizziness [Unknown]
